FAERS Safety Report 12243602 (Version 2)
Quarter: 2016Q2

REPORT INFORMATION
  Report Type: Spontaneous
  Country: TR (occurrence: TR)
  Receive Date: 20160406
  Receipt Date: 20160412
  Transmission Date: 20160815
  Serious: Yes (Death)
  Sender: FDA-Public Use
  Company Number: TR-SA-2016SA067282

PATIENT
  Age: 73 Year
  Sex: Male

DRUGS (12)
  1. LEUCOVORIN. [Suspect]
     Active Substance: LEUCOVORIN
     Indication: ADENOCARCINOMA OF COLON
     Dosage: FOR 28 DAYS IN 6 CYCLES
     Route: 065
     Dates: start: 201310
  2. FLUOROURACIL. [Suspect]
     Active Substance: FLUOROURACIL
     Indication: ADENOCARCINOMA OF COLON
     Dosage: ON DAYS 1 AND 15 FOR 28 DAYS IN 6 CYCLES
     Route: 065
     Dates: start: 201310
  3. OXALIPLATIN. [Suspect]
     Active Substance: OXALIPLATIN
     Indication: ADENOCARCINOMA OF COLON
     Dosage: ON DAYS 1 AND 15 FOR 28 DAYS IN 6 CYCLES
     Route: 065
     Dates: start: 201310
  4. METRONIDAZOLE. [Concomitant]
     Active Substance: METRONIDAZOLE
  5. PREDNISOLONE. [Suspect]
     Active Substance: PREDNISOLONE
     Indication: B-CELL LYMPHOMA
     Dosage: ON DAYS 1- 5 ONCE EVERY 3 WEEKS
     Route: 065
  6. MEROPENEM. [Concomitant]
     Active Substance: MEROPENEM
  7. OXALIPLATIN. [Suspect]
     Active Substance: OXALIPLATIN
     Indication: ADENOCARCINOMA OF COLON
     Dosage: ON DAYS 1 AND 15 FOR 28 DAYS IN 6 CYCLES
     Route: 065
  8. LEUCOVORIN. [Suspect]
     Active Substance: LEUCOVORIN
     Indication: ADENOCARCINOMA OF COLON
     Dosage: FOR 28 DAYS IN 6 CYCLES
     Route: 065
  9. RITUXIMAB [Suspect]
     Active Substance: RITUXIMAB
     Indication: B-CELL LYMPHOMA
     Dosage: ON DAY 1 ONCE EVERY 3 WEEKS
     Route: 065
  10. FLUOROURACIL. [Suspect]
     Active Substance: FLUOROURACIL
     Indication: ADENOCARCINOMA OF COLON
     Dosage: ON DAYS 1 AND 15 FOR 28 DAYS IN 6 CYCLES
     Route: 065
  11. CYCLOPHOSPHAMIDE. [Suspect]
     Active Substance: CYCLOPHOSPHAMIDE
     Indication: B-CELL LYMPHOMA
     Dosage: ON DAY 1 ONCE EVERY 3 WEEKS
     Route: 065
  12. VINCRISTINE [Suspect]
     Active Substance: VINCRISTINE
     Indication: B-CELL LYMPHOMA
     Route: 065

REACTIONS (1)
  - Malignant neoplasm progression [Fatal]
